FAERS Safety Report 4590491-8 (Version None)
Quarter: 2005Q1

REPORT INFORMATION
  Report Type: 
  Country: None (occurrence: None)
  Receive Date: 20050217
  Receipt Date: 20041215
  Transmission Date: 20050727
  Serious: Yes (Other)
  Sender: FDA-Public Use
  Company Number: 2004S1003711

PATIENT
  Age: 58 Year
  Sex: Female
  Weight: 90.2658 kg

DRUGS (6)
  1. APOKYN [Suspect]
     Indication: PARKINSON'S DISEASE
     Dosage: 2 MG QD TO TID, SUBCUTANEOUS
     Route: 058
     Dates: start: 20041013, end: 20041216
  2. PRAMIPEXOLE [Concomitant]
  3. CARBIDOPA AND LEVODOPA [Concomitant]
  4. AMITRIPTYLINE [Concomitant]
  5. ESTRADIOL [Concomitant]
  6. NAPROXEN [Concomitant]

REACTIONS (3)
  - INJECTION SITE PRURITUS [None]
  - PRURITUS [None]
  - RASH MACULO-PAPULAR [None]
